FAERS Safety Report 13792730 (Version 1)
Quarter: 2017Q3

REPORT INFORMATION
  Report Type: Spontaneous
  Country: US (occurrence: US)
  Receive Date: 20170726
  Receipt Date: 20170726
  Transmission Date: 20171127
  Serious: No
  Sender: FDA-Public Use
  Company Number: US-009507513-1707USA010355

PATIENT
  Age: 87 Year
  Sex: Male

DRUGS (3)
  1. BELSOMRA [Suspect]
     Active Substance: SUVOREXANT
     Indication: INSOMNIA
     Dosage: 20 MG, BEDTIME
     Route: 048
     Dates: start: 20170721, end: 20170722
  2. ASPIRIN. [Concomitant]
     Active Substance: ASPIRIN
     Dosage: UNK, DAILY
     Route: 048
  3. LORATADINE. [Concomitant]
     Active Substance: LORATADINE
     Route: 048

REACTIONS (2)
  - Mental disorder [Unknown]
  - Thinking abnormal [Unknown]

NARRATIVE: CASE EVENT DATE: 20170721
